FAERS Safety Report 15471814 (Version 1)
Quarter: 2018Q4

REPORT INFORMATION
  Report Type: Spontaneous
  Country: GB (occurrence: GB)
  Receive Date: 20181008
  Receipt Date: 20181008
  Transmission Date: 20190205
  Serious: Yes (Death)
  Sender: FDA-Public Use
  Company Number: GB-ROCHE-2194782

PATIENT
  Age: 50 Year
  Sex: Female
  Weight: 65 kg

DRUGS (2)
  1. METOCLOPRAMIDE. [Concomitant]
     Active Substance: METOCLOPRAMIDE
     Indication: NAUSEA
     Dosage: THREE TIMES A DAY
     Route: 048
     Dates: start: 20160714
  2. CAPECITABINE. [Suspect]
     Active Substance: CAPECITABINE
     Indication: BREAST CANCER METASTATIC
     Dosage: MOST RECENT DOSE: 16/JUL/2016
     Route: 048
     Dates: start: 20160713

REACTIONS (4)
  - Pain [Unknown]
  - Vomiting [Unknown]
  - Sudden death [Fatal]
  - Nausea [Unknown]

NARRATIVE: CASE EVENT DATE: 20160714
